FAERS Safety Report 6124505-0 (Version None)
Quarter: 2008Q4

REPORT INFORMATION
  Report Type: 
  Country: None (occurrence: None)
  Receive Date: 20080908
  Receipt Date: 20080908
  Transmission Date: 20090506
  Serious: Yes (Hospitalization)
  Sender: FDA-Public Use
  Company Number: None

PATIENT
  Sex: Male
  Weight: 67.8 kg

DRUGS (9)
  1. DASATINIB [Suspect]
     Indication: BONE SARCOMA
     Dosage: 70 MG BID PO
     Route: 048
     Dates: start: 20080820, end: 20080904
  2. BACLOFEN [Concomitant]
  3. BENADRYL [Concomitant]
  4. NEURONTIN [Concomitant]
  5. VICODIN [Concomitant]
  6. MAGNESIUM SULFATE [Concomitant]
  7. MIRALAX [Concomitant]
  8. SENOKOT [Concomitant]
  9. BACTIM [Concomitant]

REACTIONS (6)
  - ATELECTASIS [None]
  - DISEASE PROGRESSION [None]
  - LUNG CANCER METASTATIC [None]
  - LUNG CONSOLIDATION [None]
  - PAIN [None]
  - PLEURAL EFFUSION [None]
